FAERS Safety Report 9171399 (Version 1)
Quarter: 2013Q1

REPORT INFORMATION
  Report Type: Spontaneous
  Country: US (occurrence: None)
  Receive Date: 20130318
  Receipt Date: 20130318
  Transmission Date: 20140127
  Serious: Yes (Other)
  Sender: FDA-Public Use
  Company Number: None

PATIENT
  Age: 72 Year
  Sex: Female
  Weight: 81.65 kg

DRUGS (1)
  1. LANSOPRAZOLE [Suspect]
     Indication: BARRETT^S OESOPHAGUS

REACTIONS (4)
  - Diarrhoea [None]
  - Abdominal pain upper [None]
  - Decreased appetite [None]
  - Intestinal polyp [None]
